FAERS Safety Report 4594771-1 (Version None)
Quarter: 2005Q1

REPORT INFORMATION
  Report Type: 
  Country: None (occurrence: None)
  Receive Date: 20050301
  Receipt Date: 20050224
  Transmission Date: 20050727
  Serious: Yes (Death, Hospitalization)
  Sender: FDA-Public Use
  Company Number: PHBS2005DK02897

PATIENT
  Age: 66 Year
  Sex: Male

DRUGS (4)
  1. DURAGESIC-100 [Concomitant]
  2. GABAPENTIN [Concomitant]
  3. ZOLADEX [Concomitant]
  4. ZOMETA [Suspect]
     Indication: PROSTATE CANCER
     Dosage: 4 MG, QMO
     Dates: start: 20020910

REACTIONS (8)
  - BACTERIAL INFECTION [None]
  - CONSTIPATION [None]
  - DEATH [None]
  - DIALYSIS [None]
  - OSTEONECROSIS [None]
  - RENAL IMPAIRMENT [None]
  - SEQUESTRECTOMY [None]
  - URINARY RETENTION [None]
